FAERS Safety Report 22126371 (Version 1)
Quarter: 2023Q1

REPORT INFORMATION
  Report Type: Spontaneous
  Country: US (occurrence: US)
  Receive Date: 20230322
  Receipt Date: 20230322
  Transmission Date: 20230418
  Serious: No
  Sender: FDA-Public Use
  Company Number: US-TEVA-2023-US-2863892

PATIENT
  Age: 46 Year
  Sex: Female

DRUGS (1)
  1. AJOVY [Suspect]
     Active Substance: FREMANEZUMAB-VFRM
     Indication: Migraine
     Dosage: 225/1.5 MG/ML
     Route: 065
     Dates: start: 20230130

REACTIONS (8)
  - Injection site pain [Recovering/Resolving]
  - Injection site haemorrhage [Unknown]
  - Injection site mass [Recovered/Resolved]
  - Arthralgia [Recovering/Resolving]
  - Injection site swelling [Recovered/Resolved]
  - Back pain [Recovering/Resolving]
  - Accidental exposure to product [Unknown]
  - Wrong technique in product usage process [Unknown]

NARRATIVE: CASE EVENT DATE: 20230228
